FAERS Safety Report 17970076 (Version 1)
Quarter: 2020Q3

REPORT INFORMATION
  Report Type: Spontaneous
  Country: NL (occurrence: PT)
  Receive Date: 20200701
  Receipt Date: 20200701
  Transmission Date: 20201103
  Serious: Yes (Other)
  Sender: FDA-Public Use
  Company Number: PT-FRESENIUS KABI-FK202006569

PATIENT
  Age: 29 Year
  Sex: Female

DRUGS (6)
  1. MORPHINE [Concomitant]
     Active Substance: MORPHINE
     Indication: ADENOTONSILLECTOMY
     Route: 065
     Dates: start: 2014, end: 2014
  2. MIDAZOLAM (MANUFACTURER UNKNOWN) [Suspect]
     Active Substance: MIDAZOLAM HYDROCHLORIDE
     Indication: ADENOTONSILLECTOMY
     Route: 065
     Dates: start: 2014, end: 2014
  3. LIDOCAINE. [Concomitant]
     Active Substance: LIDOCAINE
     Indication: ADENOTONSILLECTOMY
     Route: 065
     Dates: start: 2014, end: 2014
  4. ATROPINE. [Concomitant]
     Active Substance: ATROPINE
     Indication: ADENOTONSILLECTOMY
     Route: 065
     Dates: start: 2014, end: 2014
  5. ROCURONIUM [Suspect]
     Active Substance: ROCURONIUM BROMIDE
     Indication: ADENOTONSILLECTOMY
     Route: 042
     Dates: start: 2014, end: 2014
  6. PROPOFOL. [Concomitant]
     Active Substance: PROPOFOL
     Indication: ADENOTONSILLECTOMY
     Route: 042
     Dates: start: 2014, end: 2014

REACTIONS (2)
  - Angioedema [Recovered/Resolved]
  - Laryngeal oedema [Recovered/Resolved]

NARRATIVE: CASE EVENT DATE: 2014
